FAERS Safety Report 4422905-8 (Version None)
Quarter: 2004Q3

REPORT INFORMATION
  Report Type: 
  Country: None (occurrence: None)
  Receive Date: 20040811
  Receipt Date: 20040805
  Transmission Date: 20050211
  Serious: Yes (Life-Threatening, Other)
  Sender: FDA-Public Use
  Company Number: 200417744GDDC

PATIENT
  Age: 30 Year
  Sex: Female
  Weight: 75 kg

DRUGS (6)
  1. OFLOXACIN [Suspect]
     Indication: PELVIC INFLAMMATORY DISEASE
     Dosage: DOSE: UNK
     Route: 048
     Dates: start: 20040501, end: 20040507
  2. METRONIDAZOLE [Suspect]
     Indication: PELVIC INFLAMMATORY DISEASE
     Dosage: DOSE: UNK
     Route: 048
     Dates: start: 20040501, end: 20040507
  3. SENNA [Concomitant]
     Indication: CONSTIPATION
     Dosage: DOSE: 2-4
     Route: 048
     Dates: start: 20040505
  4. FLUOXETINE [Concomitant]
     Indication: DEPRESSION
     Route: 048
     Dates: start: 20040115
  5. MEFENAMIC ACID [Concomitant]
     Indication: DYSMENORRHOEA
     Route: 048
     Dates: start: 20040421
  6. FUCIDINE CAP [Concomitant]
     Indication: SKIN INFECTION
     Dosage: DOSE: UNK
     Route: 061
     Dates: end: 20040213

REACTIONS (5)
  - ANAPHYLACTIC SHOCK [None]
  - DYSPHAGIA [None]
  - HEADACHE [None]
  - PHARYNGOLARYNGEAL PAIN [None]
  - RASH MACULAR [None]
